FAERS Safety Report 17775197 (Version 6)
Quarter: 2022Q2

REPORT INFORMATION
  Report Type: Report from Study
  Country: US (occurrence: US)
  Receive Date: 20200513
  Receipt Date: 20220526
  Transmission Date: 20220721
  Serious: Yes (Hospitalization, Other)
  Sender: FDA-Public Use
  Company Number: US-ACADIA PHARMACEUTICALS INC.-ACA-2020-PIM-000554

PATIENT
  Sex: Female

DRUGS (29)
  1. NUPLAZID [Suspect]
     Active Substance: PIMAVANSERIN TARTRATE
     Indication: Parkinson^s disease
     Dosage: 34 MILLIGRAM, QD
     Route: 048
     Dates: start: 201908
  2. NUPLAZID [Suspect]
     Active Substance: PIMAVANSERIN TARTRATE
     Dosage: : ROTATE BETWEEN 1 CAPSULE AND 2 CAPSULES EVERY OTHER DAY
     Route: 048
  3. LEXAPRO [Concomitant]
     Active Substance: ESCITALOPRAM OXALATE
  4. LORATADINE [Concomitant]
     Active Substance: LORATADINE
  5. METHENAMINE MANDELATE [Concomitant]
     Active Substance: METHENAMINE MANDELATE
  6. THIAMINE HYDROCHLORIDE [Concomitant]
     Active Substance: THIAMINE HYDROCHLORIDE
  7. MAGNESIUM [Concomitant]
     Active Substance: MAGNESIUM
  8. VITAMIN D2 [Concomitant]
     Active Substance: ERGOCALCIFEROL
  9. ADVIL [Concomitant]
     Active Substance: IBUPROFEN
  10. AMANTADINE [Concomitant]
     Active Substance: AMANTADINE
  11. BOTOX [Concomitant]
     Active Substance: ONABOTULINUMTOXINA
  12. CARBIDOPA, LEVODOPA AND ENTACAPONE [Concomitant]
     Active Substance: CARBIDOPA\ENTACAPONE\LEVODOPA
  13. DOCUSATE SODIUM [Concomitant]
     Active Substance: DOCUSATE SODIUM
  14. ESCITALOPRAM OXALATE [Concomitant]
     Active Substance: ESCITALOPRAM OXALATE
  15. ESTRADIOL [Concomitant]
     Active Substance: ESTRADIOL
  16. FOLIC ACID [Concomitant]
     Active Substance: FOLIC ACID
  17. GABAPENTIN [Concomitant]
     Active Substance: GABAPENTIN
  18. INBRIJA [Concomitant]
     Active Substance: LEVODOPA
  19. LACTULOSE [Concomitant]
     Active Substance: LACTULOSE
  20. LORAZEPAM [Concomitant]
     Active Substance: LORAZEPAM
  21. MEGESTROL ACETATE [Concomitant]
     Active Substance: MEGESTROL ACETATE
  22. MELATONIN [Concomitant]
     Active Substance: MELATONIN
  23. METHENAMINE HIPPURATE [Concomitant]
     Active Substance: METHENAMINE HIPPURATE
  24. MIRALAX [Concomitant]
     Active Substance: POLYETHYLENE GLYCOL 3350
  25. OMEPRAZOLE [Concomitant]
     Active Substance: OMEPRAZOLE
  26. PROBIOTICS NOS [Concomitant]
     Active Substance: PROBIOTICS NOS
  27. REFRESH OPTIVE [Concomitant]
     Active Substance: CARBOXYMETHYLCELLULOSE SODIUM\GLYCERIN
  28. RESTASIS [Concomitant]
     Active Substance: CYCLOSPORINE
  29. RYTARY [Concomitant]
     Active Substance: CARBIDOPA\LEVODOPA

REACTIONS (13)
  - Urinary tract infection [Recovered/Resolved]
  - Pneumonia [Recovered/Resolved]
  - Dehydration [Recovered/Resolved]
  - Confusional state [Recovered/Resolved]
  - Urinary tract infection [Unknown]
  - Abnormal behaviour [Recovered/Resolved]
  - Inappropriate schedule of product administration [Unknown]
  - Confusional state [Recovered/Resolved]
  - Hallucination, visual [Unknown]
  - Hallucination, visual [Unknown]
  - Drug ineffective [Unknown]
  - Hallucination [Unknown]
  - Overdose [Unknown]

NARRATIVE: CASE EVENT DATE: 20200101
